FAERS Safety Report 9349716 (Version 1)
Quarter: 2013Q2

REPORT INFORMATION
  Report Type: Spontaneous
  Country: US (occurrence: US)
  Receive Date: 20130614
  Receipt Date: 20130614
  Transmission Date: 20140414
  Serious: No
  Sender: FDA-Public Use
  Company Number: US-ASTRAZENECA-2013SE40592

PATIENT
  Age: 63 Year
  Sex: Male

DRUGS (2)
  1. BRILINTA [Suspect]
     Indication: ANGINA UNSTABLE
     Route: 048
     Dates: start: 20130531, end: 20130602
  2. ASPIRIN [Concomitant]
     Indication: ANGINA UNSTABLE
     Dosage: UNK
     Route: 048

REACTIONS (3)
  - Wound secretion [Recovered/Resolved]
  - Epistaxis [Recovered/Resolved]
  - Gingival bleeding [Recovered/Resolved]
